FAERS Safety Report 11009015 (Version 1)
Quarter: 2015Q2

REPORT INFORMATION
  Report Type: Spontaneous
  Country: IN (occurrence: None)
  Receive Date: 20150408
  Receipt Date: 20150408
  Transmission Date: 20150821
  Serious: Yes (Death)
  Sender: FDA-Public Use
  Company Number: FK201501621

PATIENT
  Sex: Female

DRUGS (2)
  1. MEROPENEM (MEROPENEM) [Concomitant]
     Active Substance: MEROPENEM
  2. POLYMYXIN B (MANUFACTURER UNKNOWN) (POLYMYXIN B) (POLYMYXIN B) [Suspect]
     Active Substance: POLYMYXIN B
     Indication: MENINGITIS BACTERIAL
     Dosage: NOT OTHERWISE SPECIFIED
     Route: 042

REACTIONS (3)
  - Nosocomial infection [None]
  - Multiple-drug resistance [None]
  - Meningitis neonatal [None]
